FAERS Safety Report 5307623-6 (Version None)
Quarter: 2007Q2

REPORT INFORMATION
  Report Type: 
  Country: None (occurrence: None)
  Receive Date: 20070425
  Receipt Date: 20070413
  Transmission Date: 20071010
  Serious: Yes (Other)
  Sender: FDA-Public Use
  Company Number: SG-PFIZER INC-2007029731

PATIENT
  Age: 3 Year
  Sex: Male

DRUGS (1)
  1. PHENYTOIN [Suspect]
     Route: 048
     Dates: start: 20060405, end: 20060426

REACTIONS (3)
  - CONJUNCTIVITIS [None]
  - LYMPHADENOPATHY [None]
  - RASH MACULO-PAPULAR [None]
